FAERS Safety Report 5661177-3 (Version None)
Quarter: 2008Q1

REPORT INFORMATION
  Report Type: 
  Country: None (occurrence: None)
  Receive Date: 20080312
  Receipt Date: 20080312
  Transmission Date: 20080703
  Serious: Yes (Other)
  Sender: FDA-Public Use
  Company Number: None

PATIENT
  Age: 28 Year
  Sex: Female
  Weight: 58.0604 kg

DRUGS (1)
  1. HEPARIN [Suspect]
     Indication: CYSTITIS INTERSTITIAL
     Dosage: ONE VIAL ONCE WEEKLY URETHRAL
     Route: 066
     Dates: start: 20080102, end: 20080303

REACTIONS (11)
  - BACK PAIN [None]
  - BLADDER PAIN [None]
  - CHEST PAIN [None]
  - DIZZINESS [None]
  - DYSPEPSIA [None]
  - FLATULENCE [None]
  - GROIN PAIN [None]
  - HEADACHE [None]
  - IMMOBILE [None]
  - MUSCULAR WEAKNESS [None]
  - NAUSEA [None]
